FAERS Safety Report 17611324 (Version 2)
Quarter: 2020Q2

REPORT INFORMATION
  Report Type: Spontaneous
  Country: US (occurrence: US)
  Receive Date: 20200401
  Receipt Date: 20200428
  Transmission Date: 20200713
  Serious: Yes (Hospitalization)
  Sender: FDA-Public Use
  Company Number: US-VIFOR (INTERNATIONAL) INC.-VIT-2020-04927

PATIENT
  Age: 56 Year
  Sex: Female

DRUGS (2)
  1. VELTASSA [Suspect]
     Active Substance: PATIROMER
     Route: 048
     Dates: start: 20200225
  2. VELTASSA [Suspect]
     Active Substance: PATIROMER
     Indication: HYPERKALAEMIA
     Route: 048
     Dates: start: 20200127

REACTIONS (5)
  - Product dose omission [Unknown]
  - Coronavirus infection [Unknown]
  - Biliary colic [Unknown]
  - Disease recurrence [Unknown]
  - Dizziness [Unknown]

NARRATIVE: CASE EVENT DATE: 2020
